FAERS Safety Report 4558478-9 (Version None)
Quarter: 2005Q1

REPORT INFORMATION
  Report Type: 
  Country: None (occurrence: None)
  Receive Date: 20050121
  Receipt Date: 20041007
  Transmission Date: 20050727
  Serious: Yes (Hospitalization)
  Sender: FDA-Public Use
  Company Number: DE-MERCK-0410DEU00234

PATIENT
  Age: 60 Year
  Sex: Female
  Weight: 67 kg

DRUGS (4)
  1. VIOXX [Suspect]
     Indication: ARTHRALGIA
     Route: 048
     Dates: start: 20020814, end: 20040730
  2. VITAMIN E [Concomitant]
     Route: 048
  3. RANITIDINE [Concomitant]
     Route: 048
     Dates: start: 20020101
  4. [THERAPY UNSPECIFIED] [Concomitant]
     Route: 048
     Dates: start: 20030901

REACTIONS (2)
  - CEREBRAL ARTERY EMBOLISM [None]
  - CEREBROVASCULAR ACCIDENT [None]
